FAERS Safety Report 24947066 (Version 1)
Quarter: 2025Q1

REPORT INFORMATION
  Report Type: Report from Study
  Country: CA (occurrence: CA)
  Receive Date: 20250210
  Receipt Date: 20250210
  Transmission Date: 20250408
  Serious: Yes (Hospitalization)
  Sender: ABBVIE
  Company Number: CA-ABBVIE-6121117

PATIENT
  Sex: Male

DRUGS (1)
  1. RINVOQ [Suspect]
     Active Substance: UPADACITINIB
     Indication: Colitis ulcerative
     Dosage: DOSE STRENGTH: 30MG
     Route: 048
     Dates: start: 20240625

REACTIONS (3)
  - Blood glucose abnormal [Unknown]
  - Colitis [Unknown]
  - Therapeutic product effect incomplete [Unknown]
